FAERS Safety Report 7422070-9 (Version None)
Quarter: 2011Q2

REPORT INFORMATION
  Report Type: 
  Country: None (occurrence: None)
  Receive Date: 20110418
  Receipt Date: 20110411
  Transmission Date: 20111010
  Serious: Yes (Hospitalization)
  Sender: FDA-Public Use
  Company Number: US-B.I. PHARMACEUTICALS,INC./RIDGEFIELD-2011-BP-01182BP

PATIENT
  Age: 75 Year
  Sex: Male

DRUGS (8)
  1. CELEBREX [Concomitant]
     Indication: ARTHRITIS
     Dosage: 1 DAILY
  2. ALLOPURINOL [Concomitant]
     Indication: GOUT
     Dosage: 300 MG
  3. PRADAXA [Suspect]
     Indication: ANTICOAGULANT THERAPY
  4. POTASSIUM [Concomitant]
     Dosage: 10 MEQ
  5. PRADAXA [Suspect]
     Indication: ATRIAL FIBRILLATION
     Dosage: 300 MG
     Route: 048
     Dates: start: 20110114, end: 20110114
  6. ZOCOR [Concomitant]
     Indication: BLOOD CHOLESTEROL ABNORMAL
     Dosage: 20 MG
  7. AMIODARONE [Concomitant]
     Indication: CARDIAC DISORDER
     Dosage: 200 MG
  8. BUMEX [Concomitant]
     Dosage: 2 MG

REACTIONS (1)
  - RECTAL HAEMORRHAGE [None]
